FAERS Safety Report 7949115-1 (Version None)
Quarter: 2011Q4

REPORT INFORMATION
  Report Type: 
  Country: None (occurrence: None)
  Receive Date: 20111129
  Receipt Date: 20111129
  Transmission Date: 20120403
  Serious: Yes (Other)
  Sender: FDA-Public Use
  Company Number: None

PATIENT
  Sex: Female
  Weight: 58.9676 kg

DRUGS (1)
  1. MIRCETTA [Suspect]
     Indication: CONTRACEPTION
     Dosage: 1 PO A DAY PO 1 MM=GENERIC
     Route: 048

REACTIONS (1)
  - METRORRHAGIA [None]
